FAERS Safety Report 22270055 (Version 1)
Quarter: 2023Q2

REPORT INFORMATION
  Report Type: Spontaneous
  Country: US (occurrence: None)
  Receive Date: 20230428
  Receipt Date: 20230428
  Transmission Date: 20230722
  Serious: Yes (Hospitalization, Other)
  Sender: FDA-Public Use
  Company Number: None

PATIENT
  Sex: Male

DRUGS (1)
  1. ABIRATERONE [Suspect]
     Active Substance: ABIRATERONE
     Dosage: FREQUENCY : DAILY;?
     Route: 048

REACTIONS (11)
  - Hypophagia [None]
  - Fluid intake reduced [None]
  - Kidney infection [None]
  - Bronchitis [None]
  - SARS-CoV-2 test positive [None]
  - Brain fog [None]
  - Colitis [None]
  - Clostridium difficile infection [None]
  - Pneumothorax [None]
  - Dehydration [None]
  - Night sweats [None]
